FAERS Safety Report 5419426-2 (Version None)
Quarter: 2007Q3

REPORT INFORMATION
  Report Type: 
  Country: None (occurrence: None)
  Receive Date: 20070820
  Receipt Date: 20070810
  Transmission Date: 20080115
  Serious: Yes (Disabling)
  Sender: FDA-Public Use
  Company Number: B0476070A

PATIENT
  Age: 58 Year
  Sex: Female
  Weight: 64 kg

DRUGS (17)
  1. VALTREX [Suspect]
     Indication: ORAL HERPES
     Dosage: 500MG TWICE PER DAY
     Route: 048
     Dates: start: 20070612, end: 20070616
  2. INTERFERON BETA [Suspect]
     Indication: HEPATITIS C
     Dosage: 300IU3 TWICE PER DAY
     Dates: start: 20070606, end: 20070611
  3. INTERFERON BETA [Suspect]
     Dosage: 600IU3 PER DAY
     Route: 042
     Dates: start: 20070612, end: 20070618
  4. URSO 250 [Concomitant]
     Indication: HEPATITIS C
     Dosage: 600MG PER DAY
     Route: 048
  5. AMLODIPINE [Concomitant]
     Dosage: 5MG PER DAY
     Route: 048
     Dates: start: 20070623
  6. TELMISARTAN [Concomitant]
     Route: 048
  7. PEG-INTRON [Concomitant]
     Indication: HEPATITIS C
     Route: 058
     Dates: start: 20070619
  8. LIVALO [Concomitant]
     Dosage: 1MG PER DAY
     Route: 048
  9. NORVASK [Concomitant]
     Dosage: 5MG PER DAY
     Route: 048
     Dates: start: 20040612
  10. MICARDIS [Concomitant]
     Dosage: 20MG PER DAY
     Route: 048
     Dates: start: 20070613, end: 20070622
  11. CEFMETAZON [Concomitant]
     Indication: HEPATITIS C
     Dosage: 2G PER DAY
     Route: 042
     Dates: start: 20070605, end: 20070608
  12. MAGNESIUM OXIDE [Concomitant]
     Indication: CONSTIPATION
     Dosage: .99G PER DAY
     Route: 048
     Dates: start: 20070616, end: 20070704
  13. FAMOTIDINE [Concomitant]
     Indication: GASTRITIS
     Dosage: 20MG PER DAY
     Route: 048
     Dates: start: 20070606
  14. BIOFERMIN [Concomitant]
     Indication: CONSTIPATION
     Dosage: 3G PER DAY
     Route: 048
     Dates: start: 20070611
  15. ANTIDIARRHEAL [Concomitant]
     Dosage: 112.5MG PER DAY
     Route: 048
     Dates: start: 20070611, end: 20070613
  16. VOLTAREN [Concomitant]
     Indication: HEPATITIS C
     Route: 048
     Dates: start: 20070606, end: 20070611
  17. REBETOL [Concomitant]
     Indication: HEPATITIS C
     Dosage: 800MG PER DAY
     Route: 048
     Dates: start: 20070619

REACTIONS (2)
  - BLOOD ALBUMIN DECREASED [None]
  - PROTEINURIA [None]
